FAERS Safety Report 22011819 (Version 1)
Quarter: 2023Q1

REPORT INFORMATION
  Report Type: Spontaneous
  Country: US (occurrence: US)
  Receive Date: 20230220
  Receipt Date: 20230220
  Transmission Date: 20230418
  Serious: Yes (Other)
  Sender: FDA-Public Use
  Company Number: US-MYLANLABS-2023M1018872

PATIENT
  Age: 22 Year
  Sex: Male

DRUGS (9)
  1. ETOPOSIDE [Suspect]
     Active Substance: ETOPOSIDE
     Indication: Testicular cancer metastatic
     Dosage: UNK, CYCLE; VIP REGIMEN
     Route: 065
  2. ETOPOSIDE [Suspect]
     Active Substance: ETOPOSIDE
     Dosage: UNK (DOSE DECREASED)
     Route: 065
  3. IFOSFAMIDE [Suspect]
     Active Substance: IFOSFAMIDE
     Indication: Testicular cancer metastatic
     Dosage: UNK, CYCLE; INITIALLY ADMINISTERED AS A PART OF VIP REGIMEN
     Route: 065
  4. IFOSFAMIDE [Suspect]
     Active Substance: IFOSFAMIDE
     Dosage: UNK, CYCLE; (DOSE REDUCED)
     Route: 065
  5. IFOSFAMIDE [Suspect]
     Active Substance: IFOSFAMIDE
     Dosage: UNK, CYCLE; LATER AS A PART OF VEIP REGIMEN
     Route: 065
  6. CISPLATIN [Suspect]
     Active Substance: CISPLATIN
     Indication: Testicular cancer metastatic
     Dosage: UNK, CYCLE; INITIALLY ADMINISTERED AS A PART OF VIP REGIMEN
     Route: 065
  7. CISPLATIN [Suspect]
     Active Substance: CISPLATIN
     Dosage: UNK, CYCLE; (DOSE REDUCED)
     Route: 065
  8. CISPLATIN [Suspect]
     Active Substance: CISPLATIN
     Dosage: UNK, CYCLE; LATER AS A PART OF VEIP REGIMEN
     Route: 065
  9. VINBLASTINE [Suspect]
     Active Substance: VINBLASTINE
     Indication: Testicular cancer metastatic
     Dosage: UNK, CYCLE; VEIP REGIMEN
     Route: 065

REACTIONS (3)
  - Nephropathy toxic [Unknown]
  - Neutropenia [Unknown]
  - Drug ineffective [Unknown]
